APPROVED DRUG PRODUCT: XENON XE 133
Active Ingredient: XENON XE-133
Strength: 20mCi/VIAL
Dosage Form/Route: GAS;INHALATION
Application: N018327 | Product #002
Applicant: CURIUM US LLC
Approved: Mar 9, 1982 | RLD: No | RS: No | Type: RX